FAERS Safety Report 16651900 (Version 1)
Quarter: 2019Q3

REPORT INFORMATION
  Report Type: Spontaneous
  Country: US (occurrence: US)
  Receive Date: 20190731
  Receipt Date: 20190731
  Transmission Date: 20191004
  Serious: No
  Sender: FDA-Public Use
  Company Number: US-PFIZER INC-2019322917

PATIENT
  Age: 54 Year
  Sex: Female

DRUGS (2)
  1. EUCRISA [Suspect]
     Active Substance: CRISABOROLE
     Indication: DERMATITIS
     Dosage: UNK UNK, 2X/DAY
  2. EUCRISA [Suspect]
     Active Substance: CRISABOROLE
     Dosage: UNK, 1X/DAY (FOR THE FIRST MONTH, SHE HAD ONLY USED IT ONCE DAILY)

REACTIONS (2)
  - Intentional product misuse [Unknown]
  - Therapeutic product effect incomplete [Unknown]
